FAERS Safety Report 9714216 (Version 1)
Quarter: 2013Q4

REPORT INFORMATION
  Report Type: Spontaneous
  Country: US (occurrence: US)
  Receive Date: 20131126
  Receipt Date: 20131126
  Transmission Date: 20140711
  Serious: No
  Sender: FDA-Public Use
  Company Number: US-GILEAD-2008-0019373

PATIENT
  Age: 67 Year
  Sex: Female
  Weight: 50.35 kg

DRUGS (6)
  1. LETAIRIS [Suspect]
     Indication: PULMONARY ARTERIAL HYPERTENSION
     Route: 048
     Dates: start: 20070905
  2. ASA [Concomitant]
  3. LISINOP-HCTZ [Concomitant]
  4. PLAVIX [Concomitant]
  5. SPIRIVA [Concomitant]
  6. TAPAZOLE [Concomitant]

REACTIONS (1)
  - Red blood cell count decreased [Not Recovered/Not Resolved]
